FAERS Safety Report 15922746 (Version 1)
Quarter: 2019Q1

REPORT INFORMATION
  Report Type: Spontaneous
  Country: DE (occurrence: DE)
  Receive Date: 20190206
  Receipt Date: 20190206
  Transmission Date: 20190417
  Serious: Yes (Hospitalization, Other)
  Sender: FDA-Public Use
  Company Number: DE-TEVA-2019-DE-1008663

PATIENT
  Age: 72 Year
  Sex: Male
  Weight: 64 kg

DRUGS (6)
  1. EXJADE [Suspect]
     Active Substance: DEFERASIROX
     Dosage: 11.4 MG/KG DAILY; 11.4 MG/KG BODY WEIGHT, QD (2 FILM-COATED TABLETS OF 360 MG)
     Route: 048
     Dates: start: 20171107, end: 20180302
  2. EXJADE [Suspect]
     Active Substance: DEFERASIROX
     Dosage: 16 MG/KG DAILY; 16 MG/KG BODY WEIGHT, QD (2 TABLETS OF 500 MG)
     Route: 048
     Dates: start: 20160418, end: 20171106
  3. PANTOPRAZOLE [Concomitant]
     Active Substance: PANTOPRAZOLE
     Indication: PROPHYLAXIS
     Dosage: 40 MILLIGRAM DAILY; 40 MG, QD (1-0-0)
     Route: 065
     Dates: start: 20150910
  4. CYCLOSPORINE. [Concomitant]
     Active Substance: CYCLOSPORINE
     Indication: MYELODYSPLASTIC SYNDROME
     Dosage: 150 OT, BID
     Route: 065
     Dates: start: 20150910, end: 20160429
  5. FOLIC ACID. [Concomitant]
     Active Substance: FOLIC ACID
     Indication: PROPHYLAXIS
     Dosage: UNK
     Route: 065
     Dates: start: 201803
  6. AMOXICILLIN. [Suspect]
     Active Substance: AMOXICILLIN
     Indication: BRONCHITIS
     Dosage: 1000 OT, BID (1-0-1)
     Route: 048
     Dates: start: 201802, end: 201802

REACTIONS (4)
  - Chills [Unknown]
  - Drug-induced liver injury [Recovered/Resolved]
  - Jaundice [Unknown]
  - Hepatic enzyme increased [Recovered/Resolved]

NARRATIVE: CASE EVENT DATE: 20180220
